FAERS Safety Report 21858200 (Version 1)
Quarter: 2023Q1

REPORT INFORMATION
  Report Type: Spontaneous
  Country: US (occurrence: None)
  Receive Date: 20230112
  Receipt Date: 20230112
  Transmission Date: 20230418
  Serious: No
  Sender: FDA-Public Use
  Company Number: None

PATIENT
  Age: 35 Year
  Sex: Female
  Weight: 199.58 kg

DRUGS (1)
  1. STELARA [Suspect]
     Active Substance: USTEKINUMAB
     Indication: Hidradenitis
     Dosage: INJECT 90MG  SUBCUTANEOUSLY  AT WEEK 0 AND WEEK 4 AS DIRECTED
     Route: 058
     Dates: start: 202105

REACTIONS (1)
  - COVID-19 [None]
